FAERS Safety Report 5170496-9 (Version None)
Quarter: 2006Q4

REPORT INFORMATION
  Report Type: 
  Country: None (occurrence: None)
  Receive Date: 20061205
  Receipt Date: 20061121
  Transmission Date: 20070319
  Serious: Yes (Hospitalization, Other)
  Sender: FDA-Public Use
  Company Number: 2006144557

PATIENT
  Age: 80 Year
  Sex: Male

DRUGS (3)
  1. DIFLUCAN [Suspect]
     Indication: INFECTION
     Dosage: ORAL
     Route: 048
  2. AVANDIA [Concomitant]
  3. AMARYL [Concomitant]

REACTIONS (2)
  - HYPOGLYCAEMIA [None]
  - LOSS OF CONSCIOUSNESS [None]
